FAERS Safety Report 8943549 (Version 4)
Quarter: 2012Q4

REPORT INFORMATION
  Report Type: 
  Country: US (occurrence: US)
  Receive Date: 20121204
  Receipt Date: 20121221
  Transmission Date: 20130627
  Serious: Yes (Hospitalization, Other)
  Sender: FDA-Public Use
  Company Number: US-UCBSA-072259

PATIENT
  Age: 38 Year
  Sex: Male
  Weight: 41 kg

DRUGS (7)
  1. CIMZIA [Suspect]
     Indication: CROHN^S DISEASE
     Dates: start: 20120721, end: 2012
  2. CIPRO [Suspect]
  3. FLAGYL [Suspect]
  4. PANTOPRAZOLE [Concomitant]
  5. PREDNISONE [Concomitant]
  6. LIALDA [Concomitant]
  7. LEXAPRO [Concomitant]

REACTIONS (6)
  - Gastrointestinal disorder [Recovering/Resolving]
  - Pulmonary embolism [Recovering/Resolving]
  - Clostridium difficile infection [Recovering/Resolving]
  - Pelvic abscess [Recovering/Resolving]
  - Weight decreased [Recovering/Resolving]
  - Cachexia [Recovering/Resolving]
